FAERS Safety Report 23994439 (Version 4)
Quarter: 2025Q1

REPORT INFORMATION
  Report Type: Spontaneous
  Country: US (occurrence: US)
  Receive Date: 20240620
  Receipt Date: 20250113
  Transmission Date: 20250409
  Serious: Yes (Hospitalization, Other)
  Sender: MERCK
  Company Number: US-009507513-2406USA004289

PATIENT
  Sex: Female

DRUGS (7)
  1. WINREVAIR [Suspect]
     Active Substance: SOTATERCEPT-CSRK
     Indication: Product used for unknown indication
     Route: 058
     Dates: end: 2024
  2. WINREVAIR [Suspect]
     Active Substance: SOTATERCEPT-CSRK
     Route: 058
     Dates: start: 202405, end: 20240816
  3. REMODULIN [Suspect]
     Active Substance: TREPROSTINIL
     Indication: Pulmonary arterial hypertension
     Route: 041
     Dates: start: 202408
  4. REMODULIN [Suspect]
     Active Substance: TREPROSTINIL
     Route: 041
     Dates: start: 2024
  5. GLEEVEC [Concomitant]
     Active Substance: IMATINIB MESYLATE
  6. OPSUMIT [Concomitant]
     Active Substance: MACITENTAN
  7. ADCIRCA [Concomitant]
     Active Substance: TADALAFIL

REACTIONS (14)
  - Pulmonary arterial hypertension [Unknown]
  - Right ventricular failure [Unknown]
  - Abdominal pain [Not Recovered/Not Resolved]
  - Atrial fibrillation [Unknown]
  - Vomiting [Unknown]
  - Nausea [Unknown]
  - Adverse event [Unknown]
  - Upper respiratory tract infection [Recovering/Resolving]
  - Pain in jaw [Not Recovered/Not Resolved]
  - Abdominal discomfort [Not Recovered/Not Resolved]
  - Headache [Not Recovered/Not Resolved]
  - Dizziness [Unknown]
  - Diarrhoea [Not Recovered/Not Resolved]
  - Epistaxis [Unknown]

NARRATIVE: CASE EVENT DATE: 20240101
